FAERS Safety Report 8401775-7 (Version None)
Quarter: 2012Q2

REPORT INFORMATION
  Report Type: 
  Country: None (occurrence: None)
  Receive Date: 20120601
  Receipt Date: 20120502
  Transmission Date: 20120825
  Serious: Yes (Death)
  Sender: FDA-Public Use
  Company Number: AU-SANOFI-AVENTIS-2012SA037624

PATIENT
  Age: 70 Year
  Sex: Female

DRUGS (2)
  1. RILUZOLE [Suspect]
     Indication: PROGRESSIVE BULBAR PALSY
     Route: 048
     Dates: start: 20090501
  2. RILUZOLE [Suspect]
     Dosage: ROUTE: PERCUTANEOUS EBDOSCOPIC GASTRONOMY TUBE
     Dates: start: 20100201, end: 20100701

REACTIONS (1)
  - DEATH [None]
